FAERS Safety Report 5011158-8 (Version None)
Quarter: 2006Q2

REPORT INFORMATION
  Report Type: 
  Country: None (occurrence: None)
  Receive Date: 20060523
  Receipt Date: 20060523
  Transmission Date: 20061013
  Serious: Yes (Hospitalization)
  Sender: FDA-Public Use
  Company Number: None

PATIENT
  Age: 80 Year
  Sex: Female

DRUGS (1)
  1. BETHANECHOL [Suspect]
     Dosage: 25 MG Q 6

REACTIONS (12)
  - ABDOMINAL DISCOMFORT [None]
  - BLOOD PRESSURE SYSTOLIC INCREASED [None]
  - DYSURIA [None]
  - HYPERHIDROSIS [None]
  - HYPOTENSION [None]
  - LOSS OF CONSCIOUSNESS [None]
  - NAUSEA [None]
  - PALLOR [None]
  - PRURITUS [None]
  - SYNCOPE [None]
  - URINARY TRACT INFECTION [None]
  - VOMITING [None]
